FAERS Safety Report 9665057 (Version 2)
Quarter: 2013Q4

REPORT INFORMATION
  Report Type: Spontaneous
  Country: CN (occurrence: CN)
  Receive Date: 20131101
  Receipt Date: 20131101
  Transmission Date: 20140711
  Serious: Yes (Hospitalization)
  Sender: FDA-Public Use
  Company Number: CN-PFIZER INC-2013302590

PATIENT
  Age: 44 Year
  Sex: Female

DRUGS (4)
  1. METHYLPREDNISOLONE [Suspect]
     Dosage: 60 MG, DAILY
     Dates: start: 200906, end: 20090710
  2. SOLU-MEDROL [Suspect]
     Indication: INFLAMMATION
     Dosage: 40 MG
     Route: 041
     Dates: start: 20090710, end: 200907
  3. SOLU-MEDROL [Suspect]
     Indication: IMMUNOSUPPRESSION
     Dosage: 40 MG
     Dates: start: 200907, end: 200907
  4. SOLU-MEDROL [Suspect]
     Dosage: 40 MG
     Route: 041
     Dates: start: 20090728, end: 20090728

REACTIONS (3)
  - Drug hypersensitivity [Unknown]
  - Dyspepsia [Unknown]
  - Abdominal discomfort [Unknown]
